FAERS Safety Report 16088085 (Version 1)
Quarter: 2019Q1

REPORT INFORMATION
  Report Type: Spontaneous
  Country: GB (occurrence: GB)
  Receive Date: 20190319
  Receipt Date: 20190319
  Transmission Date: 20190418
  Serious: Yes (Other)
  Sender: FDA-Public Use
  Company Number: GB-RICON PHARMA, LLC-RIC201903-000172

PATIENT
  Age: 61 Year
  Sex: Female

DRUGS (9)
  1. ATORVASTATIN [Concomitant]
     Active Substance: ATORVASTATIN
     Indication: HYPERLIPIDAEMIA
  2. GABAPENTIN. [Concomitant]
     Active Substance: GABAPENTIN
     Indication: BACK PAIN
  3. LEVOTHYROXINE. [Concomitant]
     Active Substance: LEVOTHYROXINE
     Indication: PRIMARY HYPOTHYROIDISM
  4. INDOMETHACIN. [Concomitant]
     Active Substance: INDOMETHACIN
  5. DEXAMETHASONE. [Suspect]
     Active Substance: DEXAMETHASONE
  6. METFORMIN [Concomitant]
     Active Substance: METFORMIN HYDROCHLORIDE
     Indication: FULMINANT TYPE 1 DIABETES MELLITUS
  7. BISOPROLOL [Concomitant]
     Active Substance: BISOPROLOL
     Indication: HYPERTENSION
  8. BETAMETHASONE. [Suspect]
     Active Substance: BETAMETHASONE
  9. PARACETAMOL [Concomitant]
     Active Substance: ACETAMINOPHEN
     Indication: OSTEOARTHRITIS

REACTIONS (8)
  - Adrenal suppression [Not Recovered/Not Resolved]
  - Foot fracture [Unknown]
  - Withdrawal syndrome [Not Recovered/Not Resolved]
  - Adrenocortical insufficiency acute [Not Recovered/Not Resolved]
  - Pneumonia [Recovered/Resolved]
  - Weight increased [Recovering/Resolving]
  - Diabetes mellitus [Recovering/Resolving]
  - Hypotension [Recovered/Resolved]
